FAERS Safety Report 25004100 (Version 1)
Quarter: 2025Q1

REPORT INFORMATION
  Report Type: Spontaneous
  Country: US (occurrence: US)
  Receive Date: 20250224
  Receipt Date: 20250224
  Transmission Date: 20250409
  Serious: No
  Sender: AMGEN
  Company Number: US-AMGEN-USASP2025032681

PATIENT

DRUGS (3)
  1. KRYSTEXXA [Suspect]
     Active Substance: PEGLOTICASE
     Indication: Product used for unknown indication
     Route: 065
     Dates: start: 20241223
  2. KRYSTEXXA [Suspect]
     Active Substance: PEGLOTICASE
     Route: 065
     Dates: start: 20250106
  3. KRYSTEXXA [Suspect]
     Active Substance: PEGLOTICASE
     Route: 065
     Dates: start: 20250211

REACTIONS (3)
  - Urticaria [Recovering/Resolving]
  - Blood uric acid abnormal [Recovering/Resolving]
  - Product dose omission issue [Unknown]

NARRATIVE: CASE EVENT DATE: 20250211
